FAERS Safety Report 10019684 (Version 2)
Quarter: 2014Q1

REPORT INFORMATION
  Report Type: Spontaneous
  Country: BR (occurrence: BR)
  Receive Date: 20140318
  Receipt Date: 20140318
  Transmission Date: 20141002
  Serious: Yes (Other)
  Sender: FDA-Public Use
  Company Number: BR-009507513-1402BRA000648

PATIENT
  Age: 55 Year
  Sex: Female
  Weight: 94 kg

DRUGS (1)
  1. JANUMET [Suspect]
     Indication: DIABETES MELLITUS
     Dosage: 1 DF, BID
     Route: 048
     Dates: start: 2011

REACTIONS (6)
  - Immune thrombocytopenic purpura [Not Recovered/Not Resolved]
  - Thrombocytopenia [Not Recovered/Not Resolved]
  - Platelet disorder [Not Recovered/Not Resolved]
  - Viral infection [Recovered/Resolved]
  - Hepatic steatosis [Unknown]
  - Blood glucose increased [Not Recovered/Not Resolved]
